FAERS Safety Report 13869495 (Version 1)
Quarter: 2017Q3

REPORT INFORMATION
  Report Type: Spontaneous
  Country: PE (occurrence: PE)
  Receive Date: 20170815
  Receipt Date: 20170815
  Transmission Date: 20171127
  Serious: Yes (Other)
  Sender: FDA-Public Use
  Company Number: PE-GLAXOSMITHKLINE-PE2017GSK125643

PATIENT
  Sex: Female

DRUGS (2)
  1. SERETIDE [Suspect]
     Active Substance: FLUTICASONE PROPIONATE\SALMETEROL XINAFOATE
     Indication: ASTHMA
     Dosage: 500 UG, BID
     Route: 055
     Dates: start: 201706
  2. SERETIDE [Suspect]
     Active Substance: FLUTICASONE PROPIONATE\SALMETEROL XINAFOATE
     Indication: ASTHMA
     Dosage: 250 UG, BID
     Route: 055

REACTIONS (5)
  - Oral mucosal eruption [Recovered/Resolved]
  - Pneumonia [Recovered/Resolved]
  - Rash [Recovered/Resolved]
  - Cheilitis [Recovering/Resolving]
  - Hypersensitivity [Recovered/Resolved]
